FAERS Safety Report 9181125 (Version 1)
Quarter: 2013Q1

REPORT INFORMATION
  Report Type: Spontaneous
  Country: US (occurrence: US)
  Receive Date: 20130322
  Receipt Date: 20130322
  Transmission Date: 20140127
  Serious: No
  Sender: FDA-Public Use
  Company Number: US-MYLANLABS-2012S1006830

PATIENT
  Age: 81 Year
  Sex: Female
  Weight: 48.99 kg

DRUGS (2)
  1. EMSAM [Suspect]
     Indication: DEPRESSION
     Dosage: CHANGED Q24H
     Route: 062
     Dates: start: 20120327
  2. COUMADIN [Concomitant]
     Indication: MITRAL VALVE REPAIR

REACTIONS (1)
  - Dizziness [Not Recovered/Not Resolved]
